FAERS Safety Report 5499293-1 (Version None)
Quarter: 2007Q4

REPORT INFORMATION
  Report Type: 
  Country: None (occurrence: None)
  Receive Date: 20071026
  Receipt Date: 20071008
  Transmission Date: 20080405
  Serious: Yes (Hospitalization, Other)
  Sender: FDA-Public Use
  Company Number: CH-JNJFOC-20071006003

PATIENT
  Age: 49 Year
  Sex: Female

DRUGS (3)
  1. INFLIXIMAB [Suspect]
     Dosage: 4TH INFUSION
     Route: 042
  2. INFLIXIMAB [Suspect]
     Indication: CROHN'S DISEASE
     Dosage: FIRST 3 INFUSIONS
     Route: 042
  3. IMUREK [Concomitant]
     Indication: CROHN'S DISEASE

REACTIONS (1)
  - SYSTEMIC LUPUS ERYTHEMATOSUS [None]
